FAERS Safety Report 11164988 (Version 1)
Quarter: 2015Q2

REPORT INFORMATION
  Report Type: Report from Study
  Country: BR (occurrence: BR)
  Receive Date: 20150604
  Receipt Date: 20150604
  Transmission Date: 20150821
  Serious: Yes (Hospitalization)
  Sender: FDA-Public Use
  Company Number: PHHY2015BR065067

PATIENT
  Sex: Female

DRUGS (1)
  1. ZOTEON PODHALER [Suspect]
     Active Substance: TOBRAMYCIN
     Indication: CYSTIC FIBROSIS
     Dosage: UNK, EVERY OTHER MONTH
     Route: 065
     Dates: start: 201409, end: 2014

REACTIONS (3)
  - Asthmatic crisis [Not Recovered/Not Resolved]
  - Allergic cough [Not Recovered/Not Resolved]
  - Cough [Not Recovered/Not Resolved]
